FAERS Safety Report 23371849 (Version 4)
Quarter: 2024Q3

REPORT INFORMATION
  Report Type: Spontaneous
  Country: US (occurrence: US)
  Receive Date: 20240105
  Receipt Date: 20240926
  Transmission Date: 20241016
  Serious: Yes (Other)
  Sender: BRISTOL MYERS SQUIBB
  Company Number: US-BRISTOL-MYERS SQUIBB COMPANY-2024-003033

PATIENT
  Age: 76 Year
  Sex: Male
  Weight: 78.47 kg

DRUGS (3)
  1. REVLIMID [Suspect]
     Active Substance: LENALIDOMIDE
     Indication: Plasma cell myeloma
     Dosage: FREQ -DAILY FOR 21DAYS
     Route: 048
     Dates: start: 20231101
  2. REVLIMID [Suspect]
     Active Substance: LENALIDOMIDE
     Dosage: 1 CAPSULE DAILY
     Route: 048
  3. REVLIMID [Suspect]
     Active Substance: LENALIDOMIDE
     Dosage: ONCE DAILY
     Route: 048

REACTIONS (4)
  - Tooth abscess [Recovering/Resolving]
  - COVID-19 [Recovering/Resolving]
  - Neuropathy peripheral [Recovering/Resolving]
  - Nausea [Not Recovered/Not Resolved]
